FAERS Safety Report 7247488-9 (Version None)
Quarter: 2011Q1

REPORT INFORMATION
  Report Type: 
  Country: None (occurrence: None)
  Receive Date: 20110127
  Receipt Date: 20110119
  Transmission Date: 20110831
  Serious: Yes (Hospitalization)
  Sender: FDA-Public Use
  Company Number: FR-BRISTOL-MYERS SQUIBB COMPANY-15502560

PATIENT
  Age: 82 Year
  Sex: Female

DRUGS (7)
  1. INSULATARD [Concomitant]
     Route: 058
  2. PRAVASTATIN SODIUM [Concomitant]
  3. NEURONTIN [Concomitant]
  4. COUMADIN [Suspect]
     Indication: DEEP VEIN THROMBOSIS
     Dosage: DURATION OF THERAPY:15D APPROX
     Dates: start: 20100901, end: 20101007
  5. LASIX [Concomitant]
  6. COVERSYL [Concomitant]
  7. STILNOX [Concomitant]

REACTIONS (4)
  - INTERNATIONAL NORMALISED RATIO INCREASED [None]
  - HAEMATOMA [None]
  - FALL [None]
  - MELAENA [None]
